FAERS Safety Report 8308437-5 (Version None)
Quarter: 2012Q2

REPORT INFORMATION
  Report Type: 
  Country: None (occurrence: None)
  Receive Date: 20120424
  Receipt Date: 20120418
  Transmission Date: 20120825
  Serious: Yes (Other)
  Sender: FDA-Public Use
  Company Number: AU-ROCHE-1058920

PATIENT
  Sex: Male
  Weight: 13.2 kg

DRUGS (3)
  1. HYDROCORTISONE [Concomitant]
  2. MABTHERA [Suspect]
     Indication: HAEMOPHILIA
     Route: 042
     Dates: start: 20120405, end: 20120405
  3. BENADRYL [Concomitant]

REACTIONS (2)
  - RESPIRATORY DISORDER [None]
  - URTICARIA [None]
